FAERS Safety Report 16967052 (Version 1)
Quarter: 2019Q4

REPORT INFORMATION
  Report Type: Spontaneous
  Country: US (occurrence: US)
  Receive Date: 20191028
  Receipt Date: 20191028
  Transmission Date: 20200122
  Serious: No
  Sender: FDA-Public Use
  Company Number: US-BAUSCH-BL-2019-057441

PATIENT
  Age: 60 Year
  Sex: Female

DRUGS (3)
  1. LUMIFY [Suspect]
     Active Substance: BRIMONIDINE TARTRATE
     Dosage: 2 DROPS OF LUMIFY IN EACH EYE
     Route: 047
     Dates: start: 20191008
  2. LUMIFY [Suspect]
     Active Substance: BRIMONIDINE TARTRATE
     Indication: OCULAR HYPERAEMIA
     Dosage: 1 DROP OF LUMIFY IN EACH EYE 1 TO 2 TIMES A DAY
     Route: 047
     Dates: start: 201909, end: 2019
  3. MULTIVITAMIN SUPPLEMENT [Concomitant]
     Indication: PRODUCT USED FOR UNKNOWN INDICATION
     Route: 048

REACTIONS (3)
  - Therapeutic product effect decreased [Unknown]
  - Product quality issue [Unknown]
  - Incorrect dose administered [Unknown]

NARRATIVE: CASE EVENT DATE: 2019
